FAERS Safety Report 6521845-8 (Version None)
Quarter: 2009Q4

REPORT INFORMATION
  Report Type: 
  Country: None (occurrence: None)
  Receive Date: 20091224
  Receipt Date: 20091214
  Transmission Date: 20100525
  Serious: Yes (Hospitalization)
  Sender: FDA-Public Use
  Company Number: 2009AL007766

PATIENT
  Age: 86 Year
  Sex: Male

DRUGS (3)
  1. METOCLOPRAMIDE [Suspect]
     Dosage: 10 MG; QID; UNK
     Route: 048
  2. LEVOTHYROXINE SODIUM [Concomitant]
  3. LISINOPRIL [Concomitant]

REACTIONS (8)
  - BLOOD CREATININE INCREASED [None]
  - CARDIAC FAILURE [None]
  - CONDITION AGGRAVATED [None]
  - DYSPNOEA [None]
  - ELECTROCARDIOGRAM QT PROLONGED [None]
  - OEDEMA PERIPHERAL [None]
  - TORSADE DE POINTES [None]
  - VENOUS PRESSURE JUGULAR INCREASED [None]
